FAERS Safety Report 7905928-3 (Version None)
Quarter: 2011Q4

REPORT INFORMATION
  Report Type: 
  Country: None (occurrence: None)
  Receive Date: 20111108
  Receipt Date: 20111031
  Transmission Date: 20120403
  Serious: Yes (Hospitalization)
  Sender: FDA-Public Use
  Company Number: DSU-2011-08117

PATIENT
  Age: 63 Year
  Sex: Female
  Weight: 58.9676 kg

DRUGS (3)
  1. ANESTHESIA (ANESTHETICS, GENERAL) [Suspect]
     Indication: GENERAL ANAESTHESIA
     Dates: start: 20110816, end: 20110816
  2. BENICAR HCT [Suspect]
     Indication: HYPERTENSION
     Dosage: 20/12.5 MG (QD), PER ORAL, 20/12.5 MG (QD), PER ORAL
     Route: 048
     Dates: start: 20060101, end: 20110701
  3. BENICAR HCT [Suspect]
     Indication: HYPERTENSION
     Dosage: 20/12.5 MG (QD), PER ORAL, 20/12.5 MG (QD), PER ORAL
     Route: 048
     Dates: start: 20110826, end: 20110831

REACTIONS (2)
  - NEPHROLITHIASIS [None]
  - ALOPECIA [None]
